FAERS Safety Report 20934461 (Version 1)
Quarter: 2022Q2

REPORT INFORMATION
  Report Type: Spontaneous
  Country: US (occurrence: US)
  Receive Date: 20220608
  Receipt Date: 20220608
  Transmission Date: 20220721
  Serious: No
  Sender: FDA-Public Use
  Company Number: US-BAUSCH-BL-2022-013971

PATIENT
  Age: 51 Year
  Sex: Female
  Weight: 72 kg

DRUGS (9)
  1. DILTIAZEM HYDROCHLORIDE [Suspect]
     Active Substance: DILTIAZEM HYDROCHLORIDE
     Indication: Product used for unknown indication
     Route: 065
  2. SILDENAFIL CITRATE [Suspect]
     Active Substance: SILDENAFIL CITRATE
     Indication: Product used for unknown indication
     Route: 065
  3. METOPROLOL [Suspect]
     Active Substance: METOPROLOL
     Indication: Product used for unknown indication
     Route: 065
  4. ORENITRAM [Suspect]
     Active Substance: TREPROSTINIL
     Indication: Pulmonary arterial hypertension
     Route: 048
  5. ORENITRAM [Suspect]
     Active Substance: TREPROSTINIL
     Route: 048
  6. ORENITRAM [Suspect]
     Active Substance: TREPROSTINIL
     Route: 048
  7. ORENITRAM [Suspect]
     Active Substance: TREPROSTINIL
     Route: 048
     Dates: start: 20220329
  8. ORENITRAM [Suspect]
     Active Substance: TREPROSTINIL
     Route: 048
  9. AMBRISENTAN [Concomitant]
     Active Substance: AMBRISENTAN
     Indication: Product used for unknown indication
     Route: 065

REACTIONS (8)
  - Blood pressure increased [Unknown]
  - Head discomfort [Unknown]
  - Fatigue [Unknown]
  - Pain in extremity [Unknown]
  - Arthralgia [Unknown]
  - Musculoskeletal discomfort [Unknown]
  - Headache [Recovered/Resolved]
  - Abdominal pain upper [Unknown]
